FAERS Safety Report 12693765 (Version 2)
Quarter: 2023Q2

REPORT INFORMATION
  Report Type: Spontaneous
  Country: US (occurrence: US)
  Receive Date: 20160829
  Receipt Date: 20230612
  Transmission Date: 20230722
  Serious: Yes (Other)
  Sender: FDA-Public Use
  Company Number: US-PFIZER INC-2016304498

PATIENT
  Age: 9 Year
  Sex: Male
  Weight: 26.3 kg

DRUGS (2)
  1. BENEFIX [Suspect]
     Active Substance: COAGULATION FACTOR IX RECOMBINANT HUMAN\ISOPROPYL ALCOHOL
     Indication: Factor IX deficiency
     Dosage: 2630 IU, DAILY (2630 UNITS (=/-5%)=100 UNITS/KG=100% DOSE DAILY)
  2. BENEFIX [Suspect]
     Active Substance: COAGULATION FACTOR IX RECOMBINANT HUMAN\ISOPROPYL ALCOHOL
     Dosage: 5600 IU, DAILY (5600 IU (+ 5%) = 100 IU/KG DAILY X 1 ON-DEMAND FOR A BLEED)

REACTIONS (1)
  - Haemorrhage [Unknown]
